FAERS Safety Report 12600849 (Version 1)
Quarter: 2016Q3

REPORT INFORMATION
  Report Type: Spontaneous
  Country: US (occurrence: US)
  Receive Date: 20160727
  Receipt Date: 20160727
  Transmission Date: 20161109
  Serious: No
  Sender: FDA-Public Use
  Company Number: US-ASTRAZENECA-2016SE67566

PATIENT
  Age: 12448 Day
  Sex: Female
  Weight: 71.2 kg

DRUGS (8)
  1. ZOLADEX [Suspect]
     Active Substance: GOSERELIN ACETATE
     Indication: BREAST CANCER FEMALE
     Route: 058
     Dates: start: 20160617
  2. ZANTAC [Concomitant]
     Active Substance: RANITIDINE HYDROCHLORIDE
     Indication: CHEMOTHERAPY
     Route: 042
     Dates: start: 20160519
  3. DEXAMETHASONE. [Concomitant]
     Active Substance: DEXAMETHASONE
     Indication: CHEMOTHERAPY
     Route: 042
     Dates: start: 20160519
  4. TYLENOL [Concomitant]
     Active Substance: ACETAMINOPHEN
     Indication: CHEMOTHERAPY
     Route: 048
     Dates: start: 20160519
  5. ZOLADEX [Suspect]
     Active Substance: GOSERELIN ACETATE
     Indication: BREAST CANCER FEMALE
     Route: 058
     Dates: start: 20160528
  6. ZOLADEX [Suspect]
     Active Substance: GOSERELIN ACETATE
     Indication: BREAST CANCER FEMALE
     Route: 058
     Dates: start: 20160505
  7. PACLITAXEL. [Concomitant]
     Active Substance: PACLITAXEL
     Indication: BREAST CANCER FEMALE
     Route: 042
     Dates: start: 20160519
  8. BENADRYL [Concomitant]
     Active Substance: DIPHENHYDRAMINE HYDROCHLORIDE
     Indication: CHEMOTHERAPY
     Route: 042
     Dates: start: 20160519

REACTIONS (6)
  - Circumstance or information capable of leading to medication error [Unknown]
  - Off label use [Unknown]
  - Device deployment issue [Unknown]
  - Injection site haemorrhage [Unknown]
  - Device defective [Unknown]
  - Product use issue [Unknown]

NARRATIVE: CASE EVENT DATE: 20160617
